FAERS Safety Report 9465988 (Version 2)
Quarter: 2013Q3

REPORT INFORMATION
  Report Type: Spontaneous
  Country: US (occurrence: US)
  Receive Date: 20130820
  Receipt Date: 20130820
  Transmission Date: 20140515
  Serious: Yes (Other)
  Sender: FDA-Public Use
  Company Number: US-FRI-1000030860

PATIENT
  Age: 20 Year
  Sex: Female

DRUGS (20)
  1. LEXAPRO [Suspect]
     Indication: DEPRESSION
     Dosage: 10 MG
     Dates: start: 20080104, end: 20080115
  2. LEXAPRO [Suspect]
     Dosage: 20 MG
     Dates: start: 20080115, end: 20080123
  3. CITALOPRAM [Suspect]
     Indication: DEPRESSION
     Dosage: 40 MG
     Dates: start: 20080123, end: 2008
  4. LEXAPRO [Suspect]
     Indication: DEPRESSION
     Dosage: 20 MG
     Dates: start: 2008, end: 2009
  5. LEXAPRO [Suspect]
     Indication: DEPRESSION
     Dosage: 10 MG
     Dates: start: 20091230, end: 2010
  6. LEXAPRO [Suspect]
     Indication: DEPRESSION
     Dosage: 10 MG
     Dates: start: 20100706, end: 2010
  7. CITALOPRAM [Suspect]
     Indication: DEPRESSION
     Dosage: 40 MG
     Route: 048
     Dates: start: 2010
  8. LEXAPRO [Suspect]
     Indication: DEPRESSION
     Dosage: 10 MG
     Dates: start: 20110516
  9. LEXAPRO [Suspect]
     Dosage: 20 MG
     Dates: start: 20110617
  10. ACIPHEX [Concomitant]
     Dosage: 20 MG
  11. TRINESSA [Concomitant]
     Indication: CONTRACEPTION
  12. ORTHO TRI-CYCLEN [Concomitant]
     Indication: CONTRACEPTION
  13. ADVIL [Concomitant]
     Dosage: AS NEEDED
  14. VICODIN [Concomitant]
     Dosage: 500/5 MG DAILY AS NEEDED
  15. NEXIUM [Concomitant]
     Indication: GASTROOESOPHAGEAL REFLUX DISEASE
     Dosage: 20 MG
     Route: 048
  16. PRENATAL VITAMIN [Concomitant]
  17. PERCOCET [Concomitant]
     Indication: MIGRAINE
     Dosage: 5/325 MG 1-2 TABS AS NEEDED
     Route: 048
  18. DOCUSATE [Concomitant]
     Dosage: 100 MG
     Route: 048
  19. AMITRIPTYLINE [Concomitant]
     Dosage: 10 MG
     Route: 048
  20. FOLIC ACID [Concomitant]

REACTIONS (20)
  - Bronchitis [Unknown]
  - Genital herpes [Not Recovered/Not Resolved]
  - Vaginal abscess [Unknown]
  - Urinary tract infection [Unknown]
  - Vaginal haemorrhage [Unknown]
  - Cellulitis [Unknown]
  - Upper respiratory tract infection [Unknown]
  - Exposure during pregnancy [Recovered/Resolved]
  - Drug ineffective [Unknown]
  - Foot fracture [Unknown]
  - Menstruation irregular [Unknown]
  - Fall [Recovered/Resolved]
  - Ligament sprain [Unknown]
  - Migraine [Recovered/Resolved]
  - Abdominal pain lower [Unknown]
  - Haematuria [Unknown]
  - Uterine spasm [Unknown]
  - Postpartum depression [Recovered/Resolved]
  - Cubital tunnel syndrome [Unknown]
  - Otitis externa [Unknown]
